FAERS Safety Report 19099279 (Version 1)
Quarter: 2021Q2

REPORT INFORMATION
  Report Type: Spontaneous
  Country: SE (occurrence: SE)
  Receive Date: 20210406
  Receipt Date: 20210406
  Transmission Date: 20210717
  Serious: Yes (Other)
  Sender: FDA-Public Use
  Company Number: SE-CELLTRION INC.-2021SE004522

PATIENT

DRUGS (1)
  1. INFLECTRA [Suspect]
     Active Substance: INFLIXIMAB-DYYB
     Indication: CROHN^S DISEASE
     Dosage: UNK
     Dates: end: 20190301

REACTIONS (4)
  - Facial paralysis [Unknown]
  - Post herpetic neuralgia [Unknown]
  - Varicella zoster virus infection [Unknown]
  - Deafness [Unknown]

NARRATIVE: CASE EVENT DATE: 20181228
